FAERS Safety Report 4843631-7 (Version None)
Quarter: 2005Q4

REPORT INFORMATION
  Report Type: 
  Country: None (occurrence: None)
  Receive Date: 20051202
  Receipt Date: 20051124
  Transmission Date: 20060501
  Serious: Yes (Hospitalization)
  Sender: FDA-Public Use
  Company Number: FR-JNJFOC-20051105714

PATIENT
  Age: 91 Year
  Sex: Female
  Weight: 42 kg

DRUGS (13)
  1. HALDOL [Suspect]
     Indication: DRUG USE FOR UNKNOWN INDICATION
     Route: 048
  2. EFFERALGAN [Suspect]
     Indication: DRUG USE FOR UNKNOWN INDICATION
     Route: 048
  3. TANAKAN [Suspect]
     Indication: DRUG USE FOR UNKNOWN INDICATION
     Route: 048
  4. NOCERTONE [Suspect]
     Route: 048
     Dates: start: 20050501, end: 20050720
  5. NOCERTONE [Suspect]
     Route: 048
     Dates: start: 20050501, end: 20050720
  6. IMODIUM [Concomitant]
     Route: 048
  7. INIPOMP [Concomitant]
     Route: 048
  8. CETORNAN [Concomitant]
  9. COLPOTROPHINE [Concomitant]
  10. ATHYMIL [Concomitant]
  11. ATHYMIL [Concomitant]
  12. TENORMIN [Concomitant]
     Dosage: 0.5 TABLET
  13. TENORMIN [Concomitant]
     Dosage: 1 TABLET

REACTIONS (7)
  - AGITATION [None]
  - ANXIETY [None]
  - CEREBRAL ATROPHY [None]
  - CONFUSIONAL STATE [None]
  - DEHYDRATION [None]
  - DIARRHOEA [None]
  - HALLUCINATION [None]
